FAERS Safety Report 9169224 (Version 1)
Quarter: 2013Q1

REPORT INFORMATION
  Report Type: Spontaneous
  Country: FR (occurrence: FR)
  Receive Date: 20130318
  Receipt Date: 20130318
  Transmission Date: 20140127
  Serious: Yes (Hospitalization)
  Sender: FDA-Public Use
  Company Number: FR-ROCHE-656278

PATIENT
  Age: 60 Year
  Sex: Male

DRUGS (12)
  1. ROCEPHINE [Suspect]
     Indication: LUNG DISORDER
     Dosage: DRUG: ROCEPHINE INJECTION SOLUTION
     Route: 042
     Dates: start: 20090708, end: 20090710
  2. ROVAMYCINE [Suspect]
     Indication: LUNG DISORDER
     Dosage: DRUG: ROVAMYCINE INJECTION SOLUTION.
     Route: 051
     Dates: start: 20090708, end: 20090710
  3. LASILIX [Suspect]
     Indication: OEDEMA
     Dosage: DRUG: LASILIX INJECTION SOLUTION.
     Route: 042
     Dates: start: 20090708, end: 20090713
  4. ACIDE FOLIQUE [Concomitant]
     Route: 065
  5. SPIRIVA [Concomitant]
     Route: 065
  6. SYMBICORT [Concomitant]
     Route: 065
  7. BRICANYL [Concomitant]
     Route: 065
  8. FUROSEMIDE [Concomitant]
     Dosage: FROM TIME TO TIME
     Route: 065
  9. DIFFU K [Concomitant]
     Route: 065
     Dates: start: 20090708, end: 20090715
  10. LOVENOX [Concomitant]
     Dosage: DOSE: 6000 IU PER 24 HOUR.
     Route: 065
  11. SPECIAFOLDINE [Concomitant]
     Route: 065
  12. SERESTA [Concomitant]
     Route: 065

REACTIONS (1)
  - Acute generalised exanthematous pustulosis [Recovering/Resolving]
